FAERS Safety Report 9331145 (Version 1)
Quarter: 2013Q2

REPORT INFORMATION
  Report Type: Spontaneous
  Country: GR (occurrence: GR)
  Receive Date: 20130605
  Receipt Date: 20130605
  Transmission Date: 20140414
  Serious: Yes (Other)
  Sender: FDA-Public Use
  Company Number: GR-JNJFOC-20130522840

PATIENT
  Age: 60 Year
  Sex: Female

DRUGS (1)
  1. REMICADE [Suspect]
     Indication: RHEUMATOID ARTHRITIS
     Dosage: 100 MG/VIAL, STARTED 13 YEARS AGO
     Route: 042
     Dates: start: 2000

REACTIONS (2)
  - Purpura [Unknown]
  - Peripheral sensorimotor neuropathy [Unknown]
